FAERS Safety Report 11636440 (Version 1)
Quarter: 2015Q4

REPORT INFORMATION
  Report Type: Spontaneous
  Country: US (occurrence: None)
  Receive Date: 20151015
  Receipt Date: 20151015
  Transmission Date: 20160304
  Serious: No
  Sender: FDA-Public Use
  Company Number: None

PATIENT
  Age: 50 Year
  Sex: Female
  Weight: 90.72 kg

DRUGS (2)
  1. ESTRADIOL 0.05 MG [Suspect]
     Active Substance: ESTRADIOL
     Indication: HYSTERECTOMY
     Route: 061
     Dates: start: 20150904, end: 20151012
  2. ALLEGRA [Concomitant]
     Active Substance: FEXOFENADINE HYDROCHLORIDE

REACTIONS (4)
  - Hot flush [None]
  - Product quality issue [None]
  - Micturition urgency [None]
  - Product substitution issue [None]

NARRATIVE: CASE EVENT DATE: 20150902
